FAERS Safety Report 7896657-3 (Version None)
Quarter: 2011Q4

REPORT INFORMATION
  Report Type: 
  Country: None (occurrence: None)
  Receive Date: 20111107
  Receipt Date: 20111031
  Transmission Date: 20120403
  Serious: No
  Sender: FDA-Public Use
  Company Number: US-BIOGENIDEC-2011BI027657

PATIENT
  Age: 23 Year
  Sex: Male

DRUGS (1)
  1. TYSABRI [Suspect]
     Indication: MULTIPLE SCLEROSIS
     Route: 042
     Dates: start: 20110215

REACTIONS (9)
  - BACK PAIN [None]
  - GAIT DISTURBANCE [None]
  - INTERVERTEBRAL DISC PROTRUSION [None]
  - VOMITING [None]
  - SURGERY [None]
  - DRUG INEFFECTIVE [None]
  - NAUSEA [None]
  - PAIN IN EXTREMITY [None]
  - SLEEP PHASE RHYTHM DISTURBANCE [None]
